FAERS Safety Report 18780608 (Version 1)
Quarter: 2021Q1

REPORT INFORMATION
  Report Type: Spontaneous
  Country: US (occurrence: US)
  Receive Date: 20210122
  Receipt Date: 20210122
  Transmission Date: 20210419
  Serious: Yes (Death)
  Sender: FDA-Public Use
  Company Number: None

PATIENT
  Age: 64 Year
  Sex: Male

DRUGS (1)
  1. AMBRISENTAN 10MG TABLETS 30/BO: 10MG [Suspect]
     Active Substance: AMBRISENTAN
     Indication: PULMONARY HYPERTENSION
     Route: 048
     Dates: start: 20190225, end: 20210107

REACTIONS (4)
  - COVID-19 pneumonia [None]
  - Cardiac arrest [None]
  - Hypotension [None]
  - Respiratory failure [None]

NARRATIVE: CASE EVENT DATE: 20210107
